FAERS Safety Report 25079228 (Version 2)
Quarter: 2025Q2

REPORT INFORMATION
  Report Type: Spontaneous
  Country: US (occurrence: US)
  Receive Date: 20250314
  Receipt Date: 20250606
  Transmission Date: 20250717
  Serious: Yes (Other)
  Sender: JOHNSON AND JOHNSON
  Company Number: US-JNJFOC-20250316927

PATIENT
  Sex: Male

DRUGS (6)
  1. HALOPERIDOL DECANOATE [Suspect]
     Active Substance: HALOPERIDOL DECANOATE
     Indication: Dementia
     Route: 065
     Dates: start: 202501
  2. HALOPERIDOL DECANOATE [Suspect]
     Active Substance: HALOPERIDOL DECANOATE
     Route: 065
     Dates: start: 202502
  3. THORAZINE [Suspect]
     Active Substance: CHLORPROMAZINE
     Indication: Dementia
     Route: 030
  4. ATIVAN [Concomitant]
     Active Substance: LORAZEPAM
     Indication: Product used for unknown indication
     Dosage: MORNING AND EVENING
  5. SEROQUEL [Concomitant]
     Active Substance: QUETIAPINE FUMARATE
     Indication: Product used for unknown indication
     Dosage: NIGHT
     Dates: start: 202502
  6. HALDOL [Concomitant]
     Active Substance: HALOPERIDOL
     Indication: Sedative therapy
     Route: 065

REACTIONS (14)
  - Tardive dyskinesia [Unknown]
  - Dizziness [Unknown]
  - Ocular discomfort [Unknown]
  - Feeling abnormal [Unknown]
  - Nausea [Unknown]
  - Influenza like illness [Unknown]
  - Ear pain [Unknown]
  - Hypoacusis [Not Recovered/Not Resolved]
  - Therapy cessation [Unknown]
  - Off label use [Unknown]
  - Off label use [Unknown]
  - Blood pressure decreased [Unknown]
  - Somnolence [Unknown]
  - Body temperature abnormal [Unknown]

NARRATIVE: CASE EVENT DATE: 20250101
